FAERS Safety Report 21036135 (Version 1)
Quarter: 2022Q3

REPORT INFORMATION
  Report Type: Spontaneous
  Country: US (occurrence: US)
  Receive Date: 20220701
  Receipt Date: 20220701
  Transmission Date: 20221026
  Serious: No
  Sender: FDA-Public Use
  Company Number: US-THERAPEUTICSMD-2021TMD02701

PATIENT
  Age: 47 Year
  Sex: Female
  Weight: 50.34 kg

DRUGS (8)
  1. IMVEXXY [Suspect]
     Active Substance: ESTRADIOL
     Indication: Discomfort
     Dosage: 10 ?G, 1X/DAY
     Route: 067
     Dates: start: 20211017
  2. MACA ROOT [Concomitant]
  3. GREEN JUICE [Concomitant]
  4. COLLAGEN [Concomitant]
     Active Substance: COLLAGEN
  5. MAGNESIUM [Concomitant]
     Active Substance: MAGNESIUM
  6. VITAMINS [Concomitant]
     Active Substance: VITAMINS
  7. FLONASE [Concomitant]
     Active Substance: FLUTICASONE PROPIONATE
  8. UNSPECIFIED OTC ALLERGY MEDICATIONS [Concomitant]
     Dosage: UNK

REACTIONS (5)
  - Arthralgia [Not Recovered/Not Resolved]
  - Paraesthesia [Not Recovered/Not Resolved]
  - Hot flush [Not Recovered/Not Resolved]
  - Off label use [Not Recovered/Not Resolved]
  - Fluid retention [Not Recovered/Not Resolved]

NARRATIVE: CASE EVENT DATE: 20211001
